FAERS Safety Report 21779628 (Version 1)
Quarter: 2022Q4

REPORT INFORMATION
  Report Type: Report from Study
  Country: US (occurrence: US)
  Receive Date: 20221226
  Receipt Date: 20221226
  Transmission Date: 20230112
  Serious: No
  Sender: FDA-Public Use
  Company Number: US-ABBVIE-4205914

PATIENT
  Sex: Male
  Weight: 59 kg

DRUGS (5)
  1. SKYRIZI [Suspect]
     Active Substance: RISANKIZUMAB-RZAA
     Indication: Psoriatic arthropathy
     Dosage: THERAPY START AND END DATE SHOULD BE 2022/FORM STRENGTH: 150MG/FOR LAB TEST ONSET DATE SHOULD BE ...
     Route: 058
  2. SKYRIZI [Suspect]
     Active Substance: RISANKIZUMAB-RZAA
     Indication: Illness
     Dosage: WEEK 4/THERAPY RESTART DATE AND CESSATION DATE SHOULD BE OCT 2022/FORM STRENGTH: 150MG
     Route: 058
  3. SKYRIZI [Suspect]
     Active Substance: RISANKIZUMAB-RZAA
     Dosage: WEEK 0/EVENT ONSET DATE SHOULD BE 2022 FOR LACK OF DRUG EFFECT AND JOINT INFLAMMATION/FORM STRENG...
     Route: 058
     Dates: start: 20221004
  4. COVID-19 vaccine [Concomitant]
     Indication: COVID-19 immunisation
     Dosage: ONE IN ONCE
     Route: 030
  5. SULFASALAZINE [Concomitant]
     Active Substance: SULFASALAZINE
     Indication: Product used for unknown indication

REACTIONS (2)
  - Drug ineffective [Unknown]
  - Arthritis [Unknown]
